FAERS Safety Report 4721567-X (Version None)
Quarter: 2005Q3

REPORT INFORMATION
  Report Type: 
  Country: None (occurrence: None)
  Receive Date: 20050721
  Receipt Date: 20041201
  Transmission Date: 20060218
  Serious: Yes (Hospitalization, Other)
  Sender: FDA-Public Use
  Company Number: US-BRISTOL-MYERS SQUIBB COMPANY-12781357

PATIENT
  Age: 77 Year
  Sex: Male
  Weight: 63 kg

DRUGS (10)
  1. COUMADIN [Suspect]
     Dosage: DURATION=YEARS AT VARYING DOSES, CURRENT REGIMEN: 4MG SUN+MON, 2MG TUES, 4MG WED+THURS+FRI,3.5MG SAT
  2. PLAVIX [Suspect]
     Indication: MITRAL VALVE REPLACEMENT
     Route: 048
     Dates: start: 19970101
  3. PLAVIX [Suspect]
     Indication: TRANSIENT ISCHAEMIC ATTACK
     Route: 048
     Dates: start: 19970101
  4. ASPIRIN [Concomitant]
     Dates: start: 19920101
  5. DIPYRIDAMOLE [Concomitant]
     Dates: start: 19920101
  6. CARBIDOPA [Concomitant]
     Dates: start: 19920101
  7. VITAMIN E [Concomitant]
     Dates: start: 19980101
  8. PROSCAR [Concomitant]
     Dates: start: 20020101
  9. DIGOXIN [Concomitant]
     Dates: start: 19920101
  10. SIMVASTATIN [Concomitant]
     Dates: start: 19920101

REACTIONS (3)
  - BACK PAIN [None]
  - INTERNATIONAL NORMALISED RATIO INCREASED [None]
  - TRANSIENT ISCHAEMIC ATTACK [None]
